FAERS Safety Report 8163212-X (Version None)
Quarter: 2012Q1

REPORT INFORMATION
  Report Type: 
  Country: None (occurrence: None)
  Receive Date: 20120224
  Receipt Date: 20110215
  Transmission Date: 20120608
  Serious: No
  Sender: FDA-Public Use
  Company Number: US-PFIZER INC-K201100177

PATIENT
  Age: 65 Year
  Sex: Male
  Weight: 95.238 kg

DRUGS (3)
  1. MOTRIN [Concomitant]
     Indication: MUSCULOSKELETAL PAIN
     Dosage: 600 MG, 2X/DAY
     Route: 048
  2. FLECTOR [Suspect]
     Indication: MUSCULOSKELETAL PAIN
     Dosage: 1 PATCH, QD
     Route: 061
     Dates: start: 20110101, end: 20110101
  3. METOPROLOL [Concomitant]
     Indication: HYPERTENSION
     Dosage: UNK
     Route: 048

REACTIONS (1)
  - DRUG INEFFECTIVE [None]
